FAERS Safety Report 14961226 (Version 1)
Quarter: 2018Q2

REPORT INFORMATION
  Report Type: Spontaneous
  Country: US (occurrence: US)
  Receive Date: 20180601
  Receipt Date: 20180601
  Transmission Date: 20180711
  Serious: No
  Sender: FDA-Public Use
  Company Number: US-TRIS PHARMA, INC-2018TRISPO00421

PATIENT

DRUGS (4)
  1. DYANAVEL XR [Suspect]
     Active Substance: AMPHETAMINE
     Indication: ATTENTION DEFICIT/HYPERACTIVITY DISORDER
     Dosage: 0.5 ML, DAILY
     Route: 065
  2. DYANAVEL XR [Suspect]
     Active Substance: AMPHETAMINE
     Dosage: DECREASED TO 4 ML, QD
     Route: 065
  3. DYANAVEL XR [Suspect]
     Active Substance: AMPHETAMINE
     Dosage: 4 ML, DAILY
     Route: 065
  4. DYANAVEL XR [Suspect]
     Active Substance: AMPHETAMINE
     Dosage: UNK, HIGHER DOSE
     Route: 065

REACTIONS (8)
  - Decreased appetite [Unknown]
  - Drug effect decreased [Not Recovered/Not Resolved]
  - Drug effect variable [Not Recovered/Not Resolved]
  - Abnormal behaviour [Unknown]
  - Irritability [Not Recovered/Not Resolved]
  - Weight decreased [Unknown]
  - Psychomotor hyperactivity [Not Recovered/Not Resolved]
  - Sleep disorder [Unknown]

NARRATIVE: CASE EVENT DATE: 20180510
